FAERS Safety Report 9846719 (Version 2)
Quarter: 2014Q1

REPORT INFORMATION
  Report Type: Spontaneous
  Country: DE (occurrence: DE)
  Receive Date: 20140127
  Receipt Date: 20140310
  Transmission Date: 20141002
  Serious: Yes (Life-Threatening, Hospitalization, Disabling)
  Sender: FDA-Public Use
  Company Number: DE-GLAXOSMITHKLINE-D0082610A

PATIENT
  Age: 42 Year
  Sex: Female

DRUGS (3)
  1. BENLYSTA [Suspect]
     Dosage: 640MG UNKNOWN
     Route: 042
     Dates: start: 20130226
  2. CHLOROQUIN [Concomitant]
     Route: 065
     Dates: start: 201203, end: 201304
  3. STEROIDS [Concomitant]
     Route: 065

REACTIONS (16)
  - Cerebral aspergillosis [Not Recovered/Not Resolved]
  - Pneumonia [Recovered/Resolved]
  - Ophthalmoplegia [Unknown]
  - Hemiplegia [Unknown]
  - Hemiparesis [Not Recovered/Not Resolved]
  - Hypoaesthesia [Unknown]
  - Gastritis [Unknown]
  - Sinusitis [Unknown]
  - Nausea [Unknown]
  - Trigeminal neuralgia [Unknown]
  - Headache [Unknown]
  - Oedema mucosal [Unknown]
  - Abscess [Unknown]
  - Hypokalaemia [Unknown]
  - Hyponatraemia [Unknown]
  - Paresis cranial nerve [Unknown]
